FAERS Safety Report 4344822-4 (Version None)
Quarter: 2004Q2

REPORT INFORMATION
  Report Type: 
  Country: None (occurrence: None)
  Receive Date: 20040420
  Receipt Date: 20040408
  Transmission Date: 20050107
  Serious: Yes (Hospitalization)
  Sender: FDA-Public Use
  Company Number: US-JNJFOC-20040401853

PATIENT
  Age: 76 Year
  Sex: Male
  Weight: 86.1834 kg

DRUGS (13)
  1. INFLIXIMAB (INFLIXIMAB, RECOMBINANT) LYOPHILIZED POWDER [Suspect]
     Indication: RHEUMATOID ARTHRITIS
     Dosage: INTRAVENOUS
     Route: 042
     Dates: start: 20000907, end: 20000907
  2. INFLIXIMAB (INFLIXIMAB, RECOMBINANT) LYOPHILIZED POWDER [Suspect]
     Indication: RHEUMATOID ARTHRITIS
     Dosage: INTRAVENOUS
     Route: 042
     Dates: start: 20031222, end: 20031222
  3. AVAPRO [Concomitant]
  4. NORVASC [Concomitant]
  5. METHOTREXATE [Concomitant]
  6. EVOXAC [Concomitant]
  7. GLUCOSAMINE CHONDROITIN (GLUCOSAMINE W/CHONDROITIN SULFATES) [Concomitant]
  8. CITRACAL D (CITRACAL +D) [Concomitant]
  9. MULTIVITAMIN (MULTIVITAMINS) [Concomitant]
  10. ASPIRIN [Concomitant]
  11. PREDNISONE [Concomitant]
  12. ALBUTEROL [Concomitant]
  13. ADVAIR (SERETIDE MITE) [Concomitant]

REACTIONS (3)
  - LUNG NEOPLASM MALIGNANT [None]
  - OESOPHAGEAL CARCINOMA [None]
  - PNEUMONIA [None]
